FAERS Safety Report 8988375 (Version 1)
Quarter: 2012Q4

REPORT INFORMATION
  Report Type: Spontaneous
  Country: US (occurrence: None)
  Receive Date: 20121220
  Receipt Date: 20121220
  Transmission Date: 20130627
  Serious: No
  Sender: FDA-Public Use
  Company Number: None

PATIENT
  Sex: Female

DRUGS (1)
  1. COPAXONE [Suspect]
     Indication: MS
     Route: 058
     Dates: start: 20120508

REACTIONS (4)
  - Fall [None]
  - Feeling abnormal [None]
  - Suicidal ideation [None]
  - Pain [None]
